FAERS Safety Report 4520946-3 (Version None)
Quarter: 2004Q4

REPORT INFORMATION
  Report Type: 
  Country: None (occurrence: None)
  Receive Date: 20041206
  Receipt Date: 20041130
  Transmission Date: 20050328
  Serious: Yes (Hospitalization)
  Sender: FDA-Public Use
  Company Number: NLWYE245630NOV04

PATIENT
  Age: 73 Year
  Sex: Female

DRUGS (5)
  1. EFFEXOR XR [Suspect]
     Dosage: 150 MG 1X PER 1 DAY, ORAL
     Route: 048
     Dates: start: 20040501, end: 20040929
  2. CRESTOR [Suspect]
     Dosage: 40 MG 1X PER 1 DAY
     Dates: start: 20030901, end: 20040929
  3. EZETROL (EZETIMIBE, , 0) [Suspect]
     Dates: start: 20040601, end: 20040929
  4. PANTOZOL (PANTOPRAZOLE SODIUM) [Concomitant]
  5. NORFLOXACIN [Concomitant]

REACTIONS (9)
  - BLOOD PRESSURE FLUCTUATION [None]
  - CONSCIOUSNESS FLUCTUATING [None]
  - HYPERKALAEMIA [None]
  - HYPERTONIA [None]
  - HYPONATRAEMIA [None]
  - NEUROLEPTIC MALIGNANT SYNDROME [None]
  - PYREXIA [None]
  - RHABDOMYOLYSIS [None]
  - TACHYCARDIA [None]
